FAERS Safety Report 17817337 (Version 2)
Quarter: 2020Q2

REPORT INFORMATION
  Report Type: Report from Study
  Country: HU (occurrence: HU)
  Receive Date: 20200522
  Receipt Date: 20200527
  Transmission Date: 20200714
  Serious: Yes (Other)
  Sender: FDA-Public Use
  Company Number: NVSC2020HU138806

PATIENT
  Age: 26 Year
  Sex: Female

DRUGS (3)
  1. RHEOSOLON [Suspect]
     Active Substance: PHENYLBUTAZONE\PREDNISOLONE
     Indication: ARTHRALGIA
     Dosage: UNK, STARTED WITH 6 TABLETS DAILY AND AFTER REDUCED WITH 1 TABLET EVERY SECOND DAY
     Route: 065
     Dates: start: 20200430, end: 20200509
  2. COSENTYX [Suspect]
     Active Substance: SECUKINUMAB
     Indication: ANKYLOSING SPONDYLITIS
     Dosage: UNK, QMO
     Route: 058
     Dates: start: 20191016
  3. COSENTYX [Suspect]
     Active Substance: SECUKINUMAB
     Dosage: UNK, QMO
     Route: 058
     Dates: start: 20200420

REACTIONS (11)
  - Ill-defined disorder [Unknown]
  - Hypoaesthesia [Unknown]
  - Ligament rupture [Unknown]
  - Drug ineffective [Not Recovered/Not Resolved]
  - Joint dislocation [Unknown]
  - Fall [Unknown]
  - Arthralgia [Not Recovered/Not Resolved]
  - Rheumatoid arthritis [Unknown]
  - Stress [Not Recovered/Not Resolved]
  - White blood cell count increased [Not Recovered/Not Resolved]
  - Dislocation of vertebra [Unknown]

NARRATIVE: CASE EVENT DATE: 201912
